FAERS Safety Report 20937611 (Version 1)
Quarter: 2022Q2

REPORT INFORMATION
  Report Type: Spontaneous
  Country: US (occurrence: None)
  Receive Date: 20220608
  Receipt Date: 20220608
  Transmission Date: 20220721
  Serious: Yes (Hospitalization)
  Sender: FDA-Public Use
  Company Number: None

PATIENT
  Age: 83 Year
  Sex: Male

DRUGS (2)
  1. LENALIDOMIDE [Suspect]
     Active Substance: LENALIDOMIDE
     Indication: Plasma cell myeloma
     Dosage: FREQUENCY : DAILY;?
     Route: 048
     Dates: start: 20220504
  2. NINLARO [Concomitant]
     Active Substance: IXAZOMIB CITRATE

REACTIONS (5)
  - Pyrexia [None]
  - Pain [None]
  - Peripheral swelling [None]
  - Crying [None]
  - Product substitution issue [None]

NARRATIVE: CASE EVENT DATE: 20220518
